FAERS Safety Report 5580025-3 (Version None)
Quarter: 2007Q4

REPORT INFORMATION
  Report Type: 
  Country: None (occurrence: None)
  Receive Date: 20071228
  Receipt Date: 20071214
  Transmission Date: 20080405
  Serious: Yes (Life-Threatening, Hospitalization)
  Sender: FDA-Public Use
  Company Number: 2007S1010607

PATIENT
  Age: 93 Year
  Sex: Female

DRUGS (4)
  1. CILOSMERCK TABLETS (NO PREF. NAME) [Suspect]
     Indication: ARTERIAL OCCLUSIVE DISEASE
     Dosage: 50 MG; TWICE A DAY; ORAL
     Route: 048
     Dates: start: 20070401, end: 20070925
  2. NORMONAL (CON.) [Concomitant]
  3. NORVASC /00972401/ (CON.) [Concomitant]
  4. COVERSYL /00790701/ (CON.) [Concomitant]

REACTIONS (3)
  - EXTRASYSTOLES [None]
  - SIMILAR REACTION ON PREVIOUS EXPOSURE TO DRUG [None]
  - VENTRICULAR TACHYCARDIA [None]
